FAERS Safety Report 8115405-5 (Version None)
Quarter: 2012Q1

REPORT INFORMATION
  Report Type: 
  Country: None (occurrence: None)
  Receive Date: 20120201
  Receipt Date: 20120119
  Transmission Date: 20120608
  Serious: Yes (Other)
  Sender: FDA-Public Use
  Company Number: 2012P1002780

PATIENT
  Sex: Male
  Weight: 83.4619 kg

DRUGS (5)
  1. ARICEPT [Concomitant]
  2. ASPIRIN [Concomitant]
  3. CETIRIZINE [Concomitant]
  4. LIPITOR [Concomitant]
  5. WARFARIN SODIUM [Suspect]
     Indication: THROMBOSIS
     Dosage: QD;PO ; 20 MG;QD;PO
     Route: 048
     Dates: start: 20000101

REACTIONS (2)
  - THROMBOSIS [None]
  - INTERNATIONAL NORMALISED RATIO FLUCTUATION [None]
